FAERS Safety Report 25806619 (Version 1)
Quarter: 2025Q3

REPORT INFORMATION
  Report Type: Spontaneous
  Country: US (occurrence: US)
  Receive Date: 20250916
  Receipt Date: 20250916
  Transmission Date: 20251021
  Serious: Yes (Other)
  Sender: MYLAN
  Company Number: US-MYLANLABS-2025M1077104

PATIENT
  Age: 45 Year
  Sex: Male

DRUGS (16)
  1. DEXAMETHASONE [Suspect]
     Active Substance: DEXAMETHASONE
     Indication: Blastic plasmacytoid dendritic cell neoplasia
  2. DEXAMETHASONE [Suspect]
     Active Substance: DEXAMETHASONE
     Route: 065
  3. DEXAMETHASONE [Suspect]
     Active Substance: DEXAMETHASONE
     Route: 065
  4. DEXAMETHASONE [Suspect]
     Active Substance: DEXAMETHASONE
  5. VINCRISTINE [Concomitant]
     Active Substance: VINCRISTINE
     Indication: Blastic plasmacytoid dendritic cell neoplasia
  6. VINCRISTINE [Concomitant]
     Active Substance: VINCRISTINE
     Route: 065
  7. VINCRISTINE [Concomitant]
     Active Substance: VINCRISTINE
     Route: 065
  8. VINCRISTINE [Concomitant]
     Active Substance: VINCRISTINE
  9. DOXORUBICIN [Concomitant]
     Active Substance: DOXORUBICIN
     Indication: Blastic plasmacytoid dendritic cell neoplasia
  10. DOXORUBICIN [Concomitant]
     Active Substance: DOXORUBICIN
     Route: 065
  11. DOXORUBICIN [Concomitant]
     Active Substance: DOXORUBICIN
     Route: 065
  12. DOXORUBICIN [Concomitant]
     Active Substance: DOXORUBICIN
  13. CYCLOPHOSPHAMIDE [Concomitant]
     Active Substance: CYCLOPHOSPHAMIDE
     Indication: Blastic plasmacytoid dendritic cell neoplasia
  14. CYCLOPHOSPHAMIDE [Concomitant]
     Active Substance: CYCLOPHOSPHAMIDE
     Route: 065
  15. CYCLOPHOSPHAMIDE [Concomitant]
     Active Substance: CYCLOPHOSPHAMIDE
     Route: 065
  16. CYCLOPHOSPHAMIDE [Concomitant]
     Active Substance: CYCLOPHOSPHAMIDE

REACTIONS (1)
  - Substance-induced psychotic disorder [Unknown]
